FAERS Safety Report 5518494-7 (Version None)
Quarter: 2007Q4

REPORT INFORMATION
  Report Type: 
  Country: None (occurrence: None)
  Receive Date: 20071115
  Receipt Date: 20071109
  Transmission Date: 20080405
  Serious: Yes (Other)
  Sender: FDA-Public Use
  Company Number: US-ASTRAZENECA-2007UW26100

PATIENT
  Age: 67 Year
  Sex: Male
  Weight: 97.5 kg

DRUGS (4)
  1. TOPROL-XL [Suspect]
     Route: 048
     Dates: start: 20030101
  2. WARFARIN SODIUM [Concomitant]
  3. ASPIRIN [Concomitant]
  4. LIPITOR [Concomitant]

REACTIONS (1)
  - GLAUCOMA [None]
